FAERS Safety Report 4753694-5 (Version None)
Quarter: 2005Q3

REPORT INFORMATION
  Report Type: 
  Country: None (occurrence: None)
  Receive Date: 20050826
  Receipt Date: 20050516
  Transmission Date: 20060218
  Serious: Yes (Hospitalization, Other)
  Sender: FDA-Public Use
  Company Number: FR-ABBOTT-05P-056-0300813-00

PATIENT
  Sex: Female
  Weight: 50 kg

DRUGS (12)
  1. HUMIRA [Suspect]
     Indication: DRUG USE FOR UNKNOWN INDICATION
     Route: 058
     Dates: start: 20041201, end: 20050501
  2. METHOTREXATE [Concomitant]
     Indication: POLYARTHRITIS
     Route: 048
     Dates: start: 20030101, end: 20040101
  3. METHOTREXATE [Concomitant]
     Route: 048
     Dates: start: 20041201, end: 20050501
  4. METHOTREXATE [Concomitant]
  5. PIROXICAM [Concomitant]
     Indication: DRUG USE FOR UNKNOWN INDICATION
  6. CYTARABINE [Concomitant]
     Indication: PROPHYLACTIC CHEMOTHERAPY
     Route: 037
     Dates: start: 20050613
  7. METHYLPREDNISOLONE [Concomitant]
     Indication: PROPHYLACTIC CHEMOTHERAPY
     Dates: start: 20050613
  8. METHOTREXATE [Concomitant]
     Indication: PROPHYLACTIC CHEMOTHERAPY
     Dates: start: 20050613
  9. OMEPRAZOLE [Concomitant]
     Indication: DRUG USE FOR UNKNOWN INDICATION
  10. METOCLOPRAMIDE [Concomitant]
     Indication: DRUG USE FOR UNKNOWN INDICATION
     Route: 048
  11. PARACETAMOL [Concomitant]
     Indication: PAIN
     Route: 048
  12. ONDANSETRON [Concomitant]
     Indication: DRUG USE FOR UNKNOWN INDICATION
     Route: 048

REACTIONS (11)
  - ABDOMINAL PAIN UPPER [None]
  - ACUTE MONOCYTIC LEUKAEMIA [None]
  - APLASIA [None]
  - ASTHENIA [None]
  - CHOLESTASIS [None]
  - CYTOLYTIC HEPATITIS [None]
  - DIARRHOEA [None]
  - HEPATIC FUNCTION ABNORMAL [None]
  - HYPERTHERMIA [None]
  - MUCOSAL INFLAMMATION [None]
  - WEIGHT DECREASED [None]
